FAERS Safety Report 6934024-7 (Version None)
Quarter: 2010Q3

REPORT INFORMATION
  Report Type: 
  Country: None (occurrence: None)
  Receive Date: 20100820
  Receipt Date: 20100812
  Transmission Date: 20110219
  Serious: Yes (Other)
  Sender: FDA-Public Use
  Company Number: GB-JNJFOC-20100805704

PATIENT
  Age: 15 Year
  Sex: Female

DRUGS (2)
  1. TOPAMAX [Suspect]
     Indication: PRODUCT USED FOR UNKNOWN INDICATION
     Route: 048
  2. UNKNOWN MEDICATION [Concomitant]

REACTIONS (3)
  - DE LANGE'S SYNDROME [None]
  - IMPAIRED GASTRIC EMPTYING [None]
  - OESOPHAGEAL ULCER [None]
